FAERS Safety Report 14269643 (Version 2)
Quarter: 2018Q4

REPORT INFORMATION
  Report Type: Spontaneous
  Country: US (occurrence: US)
  Receive Date: 20171211
  Receipt Date: 20181213
  Transmission Date: 20190204
  Serious: Yes (Hospitalization, Other)
  Sender: FDA-Public Use
  Company Number: US-OTSUKA-2017_009698

PATIENT
  Sex: Female

DRUGS (4)
  1. ABILIFY [Suspect]
     Active Substance: ARIPIPRAZOLE
     Dosage: 5 MG, QD
     Route: 048
  2. ARIPIPRAZOLE. [Concomitant]
     Active Substance: ARIPIPRAZOLE
     Indication: PRODUCT USED FOR UNKNOWN INDICATION
     Dosage: UNK
     Route: 065
     Dates: start: 20150805, end: 20170308
  3. ABILIFY [Suspect]
     Active Substance: ARIPIPRAZOLE
     Indication: MAJOR DEPRESSION
     Dosage: 2 MG, QD
     Route: 048
     Dates: start: 20120628
  4. ABILIFY [Suspect]
     Active Substance: ARIPIPRAZOLE
     Dosage: 10 MG, QD
     Route: 048
     Dates: end: 20161008

REACTIONS (28)
  - Psychosexual disorder [Recovered/Resolved]
  - Brain injury [Unknown]
  - Impulsive behaviour [Recovered/Resolved]
  - Cough [Unknown]
  - Condition aggravated [Recovered/Resolved]
  - Emotional distress [Unknown]
  - Depression [Unknown]
  - Mental disorder [Unknown]
  - Mood swings [Unknown]
  - Condition aggravated [Unknown]
  - Neuropsychiatric symptoms [Unknown]
  - Vomiting [Unknown]
  - Weight increased [Unknown]
  - Obsessive-compulsive disorder [Recovered/Resolved]
  - Suicide attempt [Recovered/Resolved]
  - Gambling disorder [Recovered/Resolved]
  - Injury [Unknown]
  - Restless legs syndrome [Unknown]
  - Suicidal ideation [Recovered/Resolved]
  - Bursitis [Unknown]
  - Abdominal pain upper [Unknown]
  - Upper respiratory tract infection [Unknown]
  - Nausea [Unknown]
  - Sciatica [Unknown]
  - Neck pain [Unknown]
  - Pharyngitis [Unknown]
  - Increased appetite [Unknown]
  - Anxiety [Unknown]

NARRATIVE: CASE EVENT DATE: 201510
